FAERS Safety Report 8999983 (Version 2)
Quarter: 2013Q2

REPORT INFORMATION
  Report Type: Spontaneous
  Country: US (occurrence: US)
  Receive Date: 20130102
  Receipt Date: 20130411
  Transmission Date: 20140414
  Serious: Yes (Other)
  Sender: FDA-Public Use
  Company Number: US-BAYER-2012-135217

PATIENT
  Age: 24 Year
  Sex: Female

DRUGS (1)
  1. MIRENA [Suspect]
     Indication: CONTRACEPTION
     Dosage: 20 MCG/24HR, CONT
     Route: 015
     Dates: start: 20121129

REACTIONS (10)
  - Menorrhagia [Not Recovered/Not Resolved]
  - Suppressed lactation [None]
  - Device issue [None]
  - Headache [None]
  - Migraine [None]
  - Hypertension [None]
  - Back pain [None]
  - Cystitis [None]
  - Vision blurred [None]
  - Strabismus [None]
